FAERS Safety Report 6785554-2 (Version None)
Quarter: 2010Q2

REPORT INFORMATION
  Report Type: 
  Country: None (occurrence: None)
  Receive Date: 20100623
  Receipt Date: 20100614
  Transmission Date: 20101027
  Serious: Yes (Other)
  Sender: FDA-Public Use
  Company Number: US-JNJFOC-20100604714

PATIENT
  Sex: Male
  Weight: 117.94 kg

DRUGS (12)
  1. SANDOZ FENTANYL TRANSDERMAL SYSTEM [Suspect]
     Indication: ARTHRITIS
     Route: 062
  2. SANDOZ FENTANYL TRANSDERMAL SYSTEM [Suspect]
     Indication: INTERVERTEBRAL DISC DEGENERATION
     Route: 062
  3. SANDOZ FENTANYL TRANSDERMAL SYSTEM [Suspect]
     Route: 062
  4. SANDOZ FENTANYL TRANSDERMAL SYSTEM [Suspect]
     Route: 062
  5. ENALAPRIL MALEATE [Concomitant]
     Indication: HYPERTENSION
     Route: 048
  6. ATENOLOL [Concomitant]
     Indication: HYPERTENSION
     Route: 048
  7. SIMVASTATIN [Concomitant]
     Indication: BLOOD CHOLESTEROL INCREASED
     Route: 048
  8. K-DUR [Concomitant]
     Indication: MINERAL SUPPLEMENTATION
     Route: 048
  9. DYAZIDE [Concomitant]
     Indication: DIURETIC THERAPY
     Dosage: 37.5 TO 35 MG
     Route: 048
  10. TIZANIDINE [Concomitant]
     Indication: MUSCLE RELAXANT THERAPY
     Dosage: 4MG/1.5 TABLETS/TID/ORAL
     Route: 048
  11. LOTRIMIN [Concomitant]
     Indication: ANTIINFLAMMATORY THERAPY
     Route: 048
  12. UNKNOWN MEDICATION [Concomitant]
     Indication: INTERVERTEBRAL DISC DEGENERATION
     Route: 065

REACTIONS (8)
  - APPLICATION SITE ERYTHEMA [None]
  - DRUG DOSE OMISSION [None]
  - FALL [None]
  - FEELING ABNORMAL [None]
  - HYPOAESTHESIA [None]
  - INADEQUATE ANALGESIA [None]
  - IRRITABILITY [None]
  - PARAESTHESIA [None]
